FAERS Safety Report 6462151-X (Version None)
Quarter: 2009Q4

REPORT INFORMATION
  Report Type: 
  Country: None (occurrence: None)
  Receive Date: 20091130
  Receipt Date: 20091028
  Transmission Date: 20100525
  Serious: No
  Sender: FDA-Public Use
  Company Number: US-BAYER-200916231BCC

PATIENT
  Age: 60 Year
  Sex: Female
  Weight: 64 kg

DRUGS (5)
  1. ALEVE [Suspect]
     Indication: BACK PAIN
     Dosage: TOTAL DAILY DOSE: 220 MG  UNIT DOSE: 220 MG
     Route: 048
     Dates: start: 20090601, end: 20090801
  2. ALEVE (CAPLET) [Suspect]
     Indication: BACK PAIN
     Dosage: TOTAL DAILY DOSE: 220 MG  UNIT DOSE: 220 MG
     Route: 048
     Dates: start: 20090801, end: 20090925
  3. VITAMIN B-12 [Concomitant]
     Route: 065
  4. CALTRATE CALCIUM [Concomitant]
     Route: 065
  5. AMBIEN [Concomitant]
     Route: 065

REACTIONS (2)
  - CONSTIPATION [None]
  - LIVER FUNCTION TEST ABNORMAL [None]
